FAERS Safety Report 6692300-X (Version None)
Quarter: 2010Q2

REPORT INFORMATION
  Report Type: 
  Country: None (occurrence: None)
  Receive Date: 20100419
  Receipt Date: 20100414
  Transmission Date: 20101027
  Serious: Yes (Life-Threatening, Hospitalization)
  Sender: FDA-Public Use
  Company Number: 2009SP034192

PATIENT
  Age: 67 Year
  Sex: Male

DRUGS (5)
  1. DESLORATADINE [Suspect]
     Indication: PREMEDICATION
     Dosage: 1 DF; ONCE
     Dates: start: 20091029, end: 20091029
  2. REMICADE [Suspect]
     Indication: PSORIASIS
     Dosage: 5 MG/KG; IV
     Route: 042
     Dates: start: 20091029, end: 20091029
  3. ANITHYPERTENSIVE MEDICATION [Concomitant]
  4. ...................... [Concomitant]
  5. MICARDIS [Concomitant]

REACTIONS (5)
  - APNOEA [None]
  - BLOOD PRESSURE DECREASED [None]
  - CARDIAC ARREST [None]
  - CYANOSIS [None]
  - INFUSION RELATED REACTION [None]
